FAERS Safety Report 8072241-6 (Version None)
Quarter: 2011Q4

REPORT INFORMATION
  Report Type: 
  Country: None (occurrence: None)
  Receive Date: 20111221
  Receipt Date: 20110718
  Transmission Date: 20120403
  Serious: Yes (Other)
  Sender: FDA-Public Use
  Company Number: PHHY2011US50739

PATIENT
  Age: 4 Year
  Sex: Female

DRUGS (5)
  1. MULTIVITAMINS (ASCORBIC ACID, ERGOCALCIFEROL, FOLIC ACID, NICOTINAMIDE [Concomitant]
  2. CALCIUM CARBONATE [Concomitant]
  3. EXJADE [Suspect]
     Dosage: 250 MG
     Dates: start: 20090201, end: 20110714
  4. FOLIC ACID [Concomitant]
  5. ATARAX (HYROXYZINE HYDROCHLORIDE) [Concomitant]

REACTIONS (11)
  - PLATELET COUNT INCREASED [None]
  - HAEMOGLOBIN DECREASED [None]
  - LYMPHOCYTE COUNT INCREASED [None]
  - EOSINOPHIL COUNT INCREASED [None]
  - RED CELL DISTRIBUTION WIDTH INCREASED [None]
  - RENAL DISORDER [None]
  - ELECTROLYTE IMBALANCE [None]
  - RED BLOOD CELL COUNT DECREASED [None]
  - NEUTROPENIA [None]
  - HAEMATOCRIT DECREASED [None]
  - MEAN CELL VOLUME DECREASED [None]
